FAERS Safety Report 9758264 (Version 1)
Quarter: 2013Q4

REPORT INFORMATION
  Report Type: Spontaneous
  Country: US (occurrence: None)
  Receive Date: 20131213
  Receipt Date: 20131213
  Transmission Date: 20140711
  Serious: Yes (Hospitalization)
  Sender: FDA-Public Use
  Company Number: None

PATIENT
  Age: 33 Year
  Sex: Female
  Weight: 145.15 kg

DRUGS (1)
  1. DULERA [Suspect]
     Route: 055
     Dates: start: 20131205, end: 20131205

REACTIONS (4)
  - Cough [None]
  - Wheezing [None]
  - Bronchospasm [None]
  - Bronchospasm [None]
